FAERS Safety Report 5121515-7 (Version None)
Quarter: 2006Q4

REPORT INFORMATION
  Report Type: 
  Country: None (occurrence: None)
  Receive Date: 20061006
  Receipt Date: 20060926
  Transmission Date: 20070319
  Serious: Yes (Other)
  Sender: FDA-Public Use
  Company Number: US-JNJFOC-20060505120

PATIENT
  Sex: Female
  Weight: 54.89 kg

DRUGS (6)
  1. REMICADE [Suspect]
     Indication: RHEUMATOID ARTHRITIS
     Route: 042
  2. METHOTREXATE [Concomitant]
     Route: 048
  3. MEDROL [Concomitant]
  4. ASPIRIN [Concomitant]
  5. FOLATE [Concomitant]
  6. ACTONEL [Concomitant]

REACTIONS (1)
  - KAPOSI'S SARCOMA [None]
